FAERS Safety Report 5023294-0 (Version None)
Quarter: 2006Q2

REPORT INFORMATION
  Report Type: 
  Country: None (occurrence: None)
  Receive Date: 20060612
  Receipt Date: 20060601
  Transmission Date: 20061013
  Serious: Yes (Death)
  Sender: FDA-Public Use
  Company Number: US-JNJFOC-20031000557

PATIENT
  Sex: Female

DRUGS (1)
  1. REMICADE [Suspect]
     Indication: RHEUMATOID ARTHRITIS
     Route: 042

REACTIONS (4)
  - GASTROINTESTINAL DISORDER [None]
  - HYPERTENSION [None]
  - MESENTERIC VASCULAR INSUFFICIENCY [None]
  - RHEUMATOID ARTHRITIS [None]
